FAERS Safety Report 12526831 (Version 3)
Quarter: 2017Q2

REPORT INFORMATION
  Report Type: Spontaneous
  Country: US (occurrence: US)
  Receive Date: 20160705
  Receipt Date: 20170426
  Transmission Date: 20170830
  Serious: Yes (Other)
  Sender: FDA-Public Use
  Company Number: US-BAYER-2016-130245

PATIENT
  Age: 25 Year
  Sex: Female

DRUGS (10)
  1. ALEVE [NAPROXEN SODIUM,PSEUDOEPHEDRINE HYDROCHLORIDE] [Suspect]
     Active Substance: NAPROXEN SODIUM\PSEUDOEPHEDRINE HYDROCHLORIDE
  2. ACETAZOLAMIDE [ACETAZOLAMIDE SODIUM] [Concomitant]
  3. DILTIAZEM. [Concomitant]
     Active Substance: DILTIAZEM
  4. LASIX [Concomitant]
     Active Substance: FUROSEMIDE
  5. ALBUTEROL. [Concomitant]
     Active Substance: ALBUTEROL
  6. TYLENOL WITH CODEINE [Suspect]
     Active Substance: ACETAMINOPHEN\CODEINE PHOSPHATE
  7. MIRENA [Suspect]
     Active Substance: LEVONORGESTREL
     Dosage: 20 MCG/24HR, CONT
     Route: 015
     Dates: start: 201212, end: 201512
  8. PHENTERMINE. [Concomitant]
     Active Substance: PHENTERMINE
  9. FLUCONAZOLE. [Concomitant]
     Active Substance: FLUCONAZOLE
  10. SEASONIQUE [Concomitant]
     Active Substance: ETHINYL ESTRADIOL\LEVONORGESTREL

REACTIONS (3)
  - Idiopathic intracranial hypertension [Not Recovered/Not Resolved]
  - Hemianaesthesia [Not Recovered/Not Resolved]
  - Papilloedema [None]

NARRATIVE: CASE EVENT DATE: 201305
